FAERS Safety Report 6769623-9 (Version None)
Quarter: 2010Q2

REPORT INFORMATION
  Report Type: 
  Country: None (occurrence: None)
  Receive Date: 20100608
  Receipt Date: 20100602
  Transmission Date: 20101027
  Serious: Yes (Hospitalization)
  Sender: FDA-Public Use
  Company Number: 2010SP029676

PATIENT
  Age: 59 Year
  Sex: Female

DRUGS (9)
  1. REFLEX  (MITRAZAPINE /01293201/) [Suspect]
     Indication: DEPRESSION
     Dosage: 15 MG; QD; PO, 30 MG; ONCE; PO, 15 MG; QD; PO
     Route: 048
     Dates: start: 20100421, end: 20100507
  2. REFLEX  (MITRAZAPINE /01293201/) [Suspect]
     Indication: DEPRESSION
     Dosage: 15 MG; QD; PO, 30 MG; ONCE; PO, 15 MG; QD; PO
     Route: 048
     Dates: start: 20100508, end: 20100508
  3. REFLEX  (MITRAZAPINE /01293201/) [Suspect]
     Indication: DEPRESSION
     Dosage: 15 MG; QD; PO, 30 MG; ONCE; PO, 15 MG; QD; PO
     Route: 048
     Dates: start: 20100509, end: 20100512
  4. ALPRAZOLAM [Concomitant]
  5. ZOLPIDEM TARTRATE [Concomitant]
  6. CHINESE HERBAL MEDICINE [Concomitant]
  7. DOGMATYL [Concomitant]
  8. ZOLOFT [Concomitant]
  9. ZOLPIDEM TARTRATE [Concomitant]

REACTIONS (9)
  - ACTIVATION SYNDROME [None]
  - CRYING [None]
  - FATIGUE [None]
  - FEELING ABNORMAL [None]
  - HYPERVENTILATION [None]
  - HYPOPHAGIA [None]
  - INSOMNIA [None]
  - MENTAL IMPAIRMENT [None]
  - SOMNOLENCE [None]
